FAERS Safety Report 10560936 (Version 8)
Quarter: 2015Q4

REPORT INFORMATION
  Report Type: Report from Study
  Country: US (occurrence: US)
  Receive Date: 20141103
  Receipt Date: 20151026
  Transmission Date: 20160304
  Serious: Yes (Other)
  Sender: FDA-Public Use
  Company Number: US-SA-2014SA013114

PATIENT
  Age: 68 Year
  Sex: Female

DRUGS (4)
  1. AUBAGIO [Suspect]
     Active Substance: TERIFLUNOMIDE
     Indication: MULTIPLE SCLEROSIS
     Route: 048
     Dates: start: 20140102
  2. AUBAGIO [Suspect]
     Active Substance: TERIFLUNOMIDE
     Indication: MULTIPLE SCLEROSIS
     Route: 048
     Dates: start: 20150109
  3. AUBAGIO [Suspect]
     Active Substance: TERIFLUNOMIDE
     Indication: MULTIPLE SCLEROSIS
     Route: 048
  4. ASPIRIN. [Concomitant]
     Active Substance: ASPIRIN
     Route: 048

REACTIONS (22)
  - Cataract [Unknown]
  - Sleep disorder [Unknown]
  - Blood folate increased [Unknown]
  - Chest pain [Unknown]
  - Dyspepsia [Not Recovered/Not Resolved]
  - Solar lentigo [Unknown]
  - Gastrooesophageal reflux disease [Unknown]
  - Weight increased [Unknown]
  - Rash [Unknown]
  - Paraesthesia [Not Recovered/Not Resolved]
  - Anaemia [Unknown]
  - Acne [Unknown]
  - Headache [Unknown]
  - Inappropriate schedule of drug administration [Unknown]
  - Restless legs syndrome [Unknown]
  - Tremor [Unknown]
  - Drug dose omission [Unknown]
  - Dysgraphia [Unknown]
  - Intervertebral disc protrusion [Unknown]
  - Memory impairment [Unknown]
  - Neuropathy peripheral [Not Recovered/Not Resolved]
  - Neuralgia [Unknown]

NARRATIVE: CASE EVENT DATE: 2011
